FAERS Safety Report 10163848 (Version 2)
Quarter: 2014Q2

REPORT INFORMATION
  Report Type: Report from Study
  Country: CA (occurrence: CA)
  Receive Date: 20140509
  Receipt Date: 20140521
  Transmission Date: 20141212
  Serious: Yes (Hospitalization)
  Sender: FDA-Public Use
  Company Number: CA-ABBVIE-14P-028-1232188-00

PATIENT
  Age: 42 Year
  Sex: Female

DRUGS (2)
  1. HUMIRA [Suspect]
     Indication: CROHN^S DISEASE
     Route: 058
     Dates: start: 20120305, end: 201402
  2. HUMIRA [Suspect]
     Route: 058
     Dates: start: 20140318

REACTIONS (2)
  - Intestinal obstruction [Unknown]
  - Nasopharyngitis [Unknown]
